FAERS Safety Report 6544044-2 (Version None)
Quarter: 2010Q1

REPORT INFORMATION
  Report Type: 
  Country: None (occurrence: None)
  Receive Date: 20100120
  Receipt Date: 20100113
  Transmission Date: 20100710
  Serious: Yes (Hospitalization)
  Sender: FDA-Public Use
  Company Number: US-B.I. PHARMACEUTICALS,INC./RIDGEFIELD-2010-BP-00469BP

PATIENT
  Age: 54 Year
  Sex: Male

DRUGS (1)
  1. ZANTAC 150 [Suspect]
     Indication: DYSPEPSIA
     Dosage: 600 MG
     Route: 048
     Dates: start: 20060101

REACTIONS (5)
  - ACCIDENT AT WORK [None]
  - MUSCULOSKELETAL PAIN [None]
  - NECK INJURY [None]
  - NECK PAIN [None]
  - ROTATOR CUFF SYNDROME [None]
